FAERS Safety Report 8976338 (Version 1)
Quarter: 2012Q4

REPORT INFORMATION
  Report Type: 
  Country: US (occurrence: US)
  Receive Date: 20121220
  Receipt Date: 20121220
  Transmission Date: 20130627
  Serious: Yes (Hospitalization)
  Sender: FDA-Public Use
  Company Number: US-ELI_LILLY_AND_COMPANY-US201212004119

PATIENT
  Sex: Female

DRUGS (1)
  1. FORTEO [Suspect]
     Indication: OSTEOPOROSIS
     Dosage: 20 ug, qd

REACTIONS (14)
  - Loss of consciousness [Unknown]
  - Infection [Unknown]
  - Asthma [Unknown]
  - Asthenia [Unknown]
  - Diarrhoea [Unknown]
  - Sinus disorder [Unknown]
  - Heart rate decreased [Unknown]
  - White blood cell count increased [Unknown]
  - Blood potassium decreased [Unknown]
  - Vomiting [Unknown]
  - Visual impairment [Not Recovered/Not Resolved]
  - Cough [Not Recovered/Not Resolved]
  - Malaise [Not Recovered/Not Resolved]
  - Decreased appetite [Not Recovered/Not Resolved]
